FAERS Safety Report 6579252-8 (Version None)
Quarter: 2010Q1

REPORT INFORMATION
  Report Type: 
  Country: None (occurrence: None)
  Receive Date: 20100212
  Receipt Date: 20100210
  Transmission Date: 20100710
  Serious: Yes (Death, Hospitalization)
  Sender: FDA-Public Use
  Company Number: US-ELI_LILLY_AND_COMPANY-US201001001830

PATIENT
  Sex: Female
  Weight: 57.143 kg

DRUGS (1)
  1. GEMZAR [Suspect]
     Indication: PANCREATIC CARCINOMA METASTATIC
     Dosage: UNK, UNK
     Dates: start: 20090310, end: 20090609

REACTIONS (2)
  - HOSPITALISATION [None]
  - MALIGNANT NEOPLASM PROGRESSION [None]
